APPROVED DRUG PRODUCT: ATENOLOL
Active Ingredient: ATENOLOL
Strength: 50MG
Dosage Form/Route: TABLET;ORAL
Application: A074265 | Product #002
Applicant: CHARTWELL RX SCIENCES LLC
Approved: Feb 28, 1994 | RLD: No | RS: No | Type: DISCN